FAERS Safety Report 5109089-8 (Version None)
Quarter: 2006Q3

REPORT INFORMATION
  Report Type: 
  Country: None (occurrence: None)
  Receive Date: 20060918
  Receipt Date: 20060829
  Transmission Date: 20061208
  Serious: Yes (Other)
  Sender: FDA-Public Use
  Company Number: US200608001483

PATIENT
  Age: 55 Year
  Sex: Female

DRUGS (4)
  1. HUMULIN N [Suspect]
     Indication: DIABETES MELLITUS
     Dosage: SEE IMAGE
     Dates: start: 19960101
  2. HUMULIN N [Suspect]
     Indication: DIABETES MELLITUS
     Dosage: SEE IMAGE
     Dates: start: 19960101
  3. HUMULIN R [Suspect]
     Indication: DIABETES MELLITUS
     Dosage: 6 U, DAILY (1/D),
     Dates: start: 19960101
  4. BYETTA (EXANATIDE) PEN, DISPOSABLE [Concomitant]

REACTIONS (4)
  - BLOOD GLUCOSE INCREASED [None]
  - LYMPHOMA [None]
  - NAUSEA [None]
  - VOMITING [None]
